FAERS Safety Report 19731969 (Version 1)
Quarter: 2021Q3

REPORT INFORMATION
  Report Type: Spontaneous
  Country: CN (occurrence: CN)
  Receive Date: 20210820
  Receipt Date: 20210820
  Transmission Date: 20211014
  Serious: Yes (Hospitalization)
  Sender: FDA-Public Use
  Company Number: NVSC2021CN186217

PATIENT

DRUGS (2)
  1. METHOTREXATE. [Concomitant]
     Active Substance: METHOTREXATE
     Indication: PRODUCT USED FOR UNKNOWN INDICATION
     Dosage: UNK
     Route: 065
  2. COSENTYX [Suspect]
     Active Substance: SECUKINUMAB
     Indication: ERYTHRODERMIC PSORIASIS
     Dosage: 300 MG
     Route: 058
     Dates: start: 20210708, end: 20210805

REACTIONS (5)
  - Peripheral swelling [Unknown]
  - Drug eruption [Unknown]
  - Off label use [Unknown]
  - Pruritus [Unknown]
  - Rash pustular [Not Recovered/Not Resolved]
